FAERS Safety Report 4320128-4 (Version None)
Quarter: 2004Q1

REPORT INFORMATION
  Report Type: 
  Country: None (occurrence: None)
  Receive Date: 20040317
  Receipt Date: 20040303
  Transmission Date: 20041129
  Serious: Yes (Death)
  Sender: FDA-Public Use
  Company Number: GBWYE624505MAR04

PATIENT
  Age: 73 Year
  Sex: Male

DRUGS (6)
  1. MONOCOR (BISOPROLOL, TABLET, 0) [Suspect]
     Indication: CARDIAC FAILURE
     Dosage: 1.25 (FREQUENCY UNSPECIFIED), ORAL; 2.5 MG (FREQUENCY UNSPECIFIED), ORAL
     Route: 048
     Dates: start: 20040205, end: 20040211
  2. MONOCOR (BISOPROLOL, TABLET, 0) [Suspect]
     Indication: CARDIAC FAILURE
     Dosage: 1.25 (FREQUENCY UNSPECIFIED), ORAL; 2.5 MG (FREQUENCY UNSPECIFIED), ORAL
     Route: 048
     Dates: start: 20040128, end: 20040211
  3. FUROSEMIDE [Concomitant]
  4. PRAVASTATIN [Concomitant]
  5. ASPIRIN [Concomitant]
  6. SANDOGLOBULIN [Concomitant]

REACTIONS (4)
  - AORTIC STENOSIS [None]
  - HYPOTENSION [None]
  - PULMONARY OEDEMA [None]
  - RENAL FAILURE ACUTE [None]
